FAERS Safety Report 19253821 (Version 2)
Quarter: 2021Q2

REPORT INFORMATION
  Report Type: Spontaneous
  Country: AT (occurrence: AT)
  Receive Date: 20210513
  Receipt Date: 20210517
  Transmission Date: 20210717
  Serious: Yes (Death, Other)
  Sender: FDA-Public Use
  Company Number: AT-B.I. PHARMACEUTICALS,INC./RIDGEFIELD-2021-BI-102472

PATIENT
  Age: 80 Year
  Sex: Male

DRUGS (14)
  1. CENIPRES [Concomitant]
     Indication: PRODUCT USED FOR UNKNOWN INDICATION
     Dosage: CENIPRES TBL 10/20MG
  2. CRESTOR [Concomitant]
     Active Substance: ROSUVASTATIN CALCIUM
     Indication: PRODUCT USED FOR UNKNOWN INDICATION
     Dosage: CRESTOR FTBL 40MG
  3. NOVALGIN (METAMIZOLE SODIUM) [Concomitant]
     Active Substance: METAMIZOLE SODIUM
     Indication: PRODUCT USED FOR UNKNOWN INDICATION
  4. BANEOCIN [BACITRACIN;NEOMYCIN SULFATE] [Concomitant]
     Indication: PRODUCT USED FOR UNKNOWN INDICATION
  5. SELOKEN RETARD PLUS [Concomitant]
     Indication: PRODUCT USED FOR UNKNOWN INDICATION
     Dosage: SELOKEN RET?FTBL 95MG
  6. JARDIANCE [Suspect]
     Active Substance: EMPAGLIFLOZIN
     Indication: PRODUCT USED FOR UNKNOWN INDICATION
     Route: 030
  7. HYDAL [Concomitant]
     Active Substance: HYDROMORPHONE HYDROCHLORIDE
     Indication: PRODUCT USED FOR UNKNOWN INDICATION
     Dosage: HYDAL RET KPS 8MG
  8. BETMIGA [Concomitant]
     Active Substance: MIRABEGRON
     Indication: PRODUCT USED FOR UNKNOWN INDICATION
     Dosage: BETMIGA RET TBL 50MG
  9. MEXALEN [Concomitant]
     Active Substance: ACETAMINOPHEN
     Indication: PRODUCT USED FOR UNKNOWN INDICATION
     Dosage: MEXALEN TBL 500MG
  10. TRAJENTA [Concomitant]
     Active Substance: LINAGLIPTIN
     Indication: PRODUCT USED FOR UNKNOWN INDICATION
     Dosage: TRAJENTA FTBL 5MG
  11. LAEVOLAC [Concomitant]
     Active Substance: LACTULOSE
     Indication: PRODUCT USED FOR UNKNOWN INDICATION
  12. GABAPENTIN. [Concomitant]
     Active Substance: GABAPENTIN
     Indication: PRODUCT USED FOR UNKNOWN INDICATION
     Dosage: GABAPENTIN RTP KPS 300MG
  13. SYNJARDY [Suspect]
     Active Substance: EMPAGLIFLOZIN\METFORMIN HYDROCHLORIDE
     Indication: PRODUCT USED FOR UNKNOWN INDICATION
     Dosage: SYNJARDY FTBL 12,5/1000MG
  14. DIAMICRON MR [Concomitant]
     Active Substance: GLICLAZIDE
     Indication: PRODUCT USED FOR UNKNOWN INDICATION
     Dosage: DIAMICRON MR TBL 30MG

REACTIONS (8)
  - Cardiac failure [Fatal]
  - Inflammatory marker increased [Fatal]
  - Intestinal ischaemia [Fatal]
  - Acute coronary syndrome [Fatal]
  - Ketoacidosis [Fatal]
  - Sepsis [Fatal]
  - Cardiogenic shock [Fatal]
  - Septic shock [Fatal]

NARRATIVE: CASE EVENT DATE: 20210426
